FAERS Safety Report 15960708 (Version 2)
Quarter: 2019Q1

REPORT INFORMATION
  Report Type: Spontaneous
  Country: US (occurrence: US)
  Receive Date: 20190214
  Receipt Date: 20190313
  Transmission Date: 20190417
  Serious: Yes (Other)
  Sender: FDA-Public Use
  Company Number: US-BAYER-2019-031962

PATIENT
  Age: 39 Year
  Sex: Female
  Weight: 68 kg

DRUGS (3)
  1. LIDOCAIN ADRENALIN [Concomitant]
     Dosage: UNK
     Dates: start: 20170623
  2. MIRENA [Suspect]
     Active Substance: LEVONORGESTREL
     Indication: CONTRACEPTION
     Dosage: 20 MCG/24HR, CONT
     Route: 015
     Dates: start: 20170623, end: 20190126
  3. MIRENA [Suspect]
     Active Substance: LEVONORGESTREL
     Indication: CONTRACEPTION

REACTIONS (24)
  - Dysmenorrhoea [None]
  - Dizziness [None]
  - Adenomyosis [None]
  - Endometriosis [None]
  - Abdominal pain lower [None]
  - Back pain [None]
  - Weight loss poor [None]
  - Pelvic pain [None]
  - Dyspareunia [None]
  - Abdominal distension [None]
  - Anxiety [None]
  - Stress [None]
  - Device expulsion [Recovered/Resolved]
  - Nervousness [None]
  - Abdominal tenderness [None]
  - Procedural haemorrhage [None]
  - Procedural pain [None]
  - Vaginal haemorrhage [None]
  - Adnexa uteri pain [None]
  - Uterine leiomyoma [None]
  - Menorrhagia [Recovered/Resolved]
  - Fatigue [None]
  - Irritability [None]
  - Uterine enlargement [None]

NARRATIVE: CASE EVENT DATE: 20170623
